FAERS Safety Report 9975360 (Version 1)
Quarter: 2014Q1

REPORT INFORMATION
  Report Type: Report from Study
  Country: US (occurrence: US)
  Receive Date: 20140306
  Receipt Date: 20140306
  Transmission Date: 20141002
  Serious: No
  Sender: FDA-Public Use
  Company Number: US-ABBVIE-13P-163-1158301-00

PATIENT
  Age: 60 Year
  Sex: Female
  Weight: 65.83 kg

DRUGS (8)
  1. HUMIRA [Suspect]
     Indication: CROHN^S DISEASE
     Dates: start: 20131001, end: 20131001
  2. FORTEO [Concomitant]
     Indication: OSTEOPOROSIS
  3. FERREX [Concomitant]
     Indication: VITAMIN SUPPLEMENTATION
  4. CALCIUM [Concomitant]
     Indication: VITAMIN SUPPLEMENTATION
  5. GABAPENTIN [Concomitant]
     Indication: NEURALGIA
  6. VITAMIN B12 [Concomitant]
     Indication: VITAMIN SUPPLEMENTATION
     Route: 060
  7. MAGNESIUM [Concomitant]
     Indication: VITAMIN SUPPLEMENTATION
  8. PRILOSEC [Concomitant]
     Indication: ANTACID THERAPY

REACTIONS (3)
  - Injection site bruising [Recovered/Resolved]
  - Wrong technique in drug usage process [Recovered/Resolved]
  - Injection site haemorrhage [Recovered/Resolved]
